FAERS Safety Report 25605106 (Version 4)
Quarter: 2025Q3

REPORT INFORMATION
  Report Type: Spontaneous
  Country: CA (occurrence: CA)
  Receive Date: 20250725
  Receipt Date: 20250910
  Transmission Date: 20251020
  Serious: Yes (Death, Life-Threatening, Hospitalization, Disabling, Congenital Anomaly, Other)
  Sender: CELLTRION
  Company Number: CA-CELLTRION INC.-2025CA024477

PATIENT

DRUGS (381)
  1. ADALIMUMAB [Suspect]
     Active Substance: ADALIMUMAB
     Indication: Rheumatoid arthritis
     Dosage: 40 MILLIGRAM, 1 EVERY 2 WEEKS
     Route: 058
  2. ADALIMUMAB [Suspect]
     Active Substance: ADALIMUMAB
     Route: 058
  3. ADALIMUMAB [Suspect]
     Active Substance: ADALIMUMAB
     Route: 058
  4. ADALIMUMAB [Suspect]
     Active Substance: ADALIMUMAB
     Route: 042
  5. ADALIMUMAB [Suspect]
     Active Substance: ADALIMUMAB
     Route: 058
  6. ADALIMUMAB [Suspect]
     Active Substance: ADALIMUMAB
     Dosage: 40 MILLIGRAM, 1 EVERY 2 WEEKS
     Route: 042
  7. INFLIXIMAB [Suspect]
     Active Substance: INFLIXIMAB
     Indication: Rheumatoid arthritis
     Route: 058
  8. RITUXIMAB [Suspect]
     Active Substance: RITUXIMAB
     Indication: Rheumatoid arthritis
     Route: 065
  9. RITUXIMAB [Suspect]
     Active Substance: RITUXIMAB
     Route: 065
  10. RITUXIMAB [Suspect]
     Active Substance: RITUXIMAB
     Route: 065
  11. RITUXIMAB [Suspect]
     Active Substance: RITUXIMAB
     Route: 058
  12. RITUXIMAB [Suspect]
     Active Substance: RITUXIMAB
     Route: 043
  13. RITUXIMAB [Suspect]
     Active Substance: RITUXIMAB
     Route: 065
  14. RITUXIMAB [Suspect]
     Active Substance: RITUXIMAB
     Route: 042
  15. RITUXIMAB [Suspect]
     Active Substance: RITUXIMAB
     Route: 065
  16. RITUXIMAB [Suspect]
     Active Substance: RITUXIMAB
     Route: 042
  17. RITUXIMAB [Suspect]
     Active Substance: RITUXIMAB
     Route: 016
  18. RITUXIMAB [Suspect]
     Active Substance: RITUXIMAB
     Route: 065
  19. RITUXIMAB [Suspect]
     Active Substance: RITUXIMAB
     Route: 065
  20. RITUXIMAB [Suspect]
     Active Substance: RITUXIMAB
     Route: 065
  21. RITUXIMAB [Suspect]
     Active Substance: RITUXIMAB
     Route: 042
  22. RITUXIMAB [Suspect]
     Active Substance: RITUXIMAB
     Route: 065
  23. RITUXIMAB [Suspect]
     Active Substance: RITUXIMAB
     Route: 065
  24. RITUXIMAB [Suspect]
     Active Substance: RITUXIMAB
     Route: 065
  25. RITUXIMAB [Suspect]
     Active Substance: RITUXIMAB
     Route: 042
  26. RITUXIMAB [Suspect]
     Active Substance: RITUXIMAB
     Route: 042
  27. RITUXIMAB [Suspect]
     Active Substance: RITUXIMAB
     Route: 065
  28. RITUXIMAB [Suspect]
     Active Substance: RITUXIMAB
     Route: 058
  29. RITUXIMAB [Suspect]
     Active Substance: RITUXIMAB
     Route: 065
  30. RITUXIMAB [Suspect]
     Active Substance: RITUXIMAB
     Route: 043
  31. RITUXIMAB [Suspect]
     Active Substance: RITUXIMAB
     Route: 040
  32. RITUXIMAB [Suspect]
     Active Substance: RITUXIMAB
     Route: 042
  33. RITUXIMAB [Suspect]
     Active Substance: RITUXIMAB
     Route: 065
  34. RITUXIMAB [Suspect]
     Active Substance: RITUXIMAB
     Route: 016
  35. RITUXIMAB [Suspect]
     Active Substance: RITUXIMAB
     Route: 016
  36. RITUXIMAB [Suspect]
     Active Substance: RITUXIMAB
     Route: 058
  37. ACETAMINOPHEN [Suspect]
     Active Substance: ACETAMINOPHEN
     Indication: Rheumatoid arthritis
     Route: 065
  38. ACETAMINOPHEN [Suspect]
     Active Substance: ACETAMINOPHEN
     Indication: Rheumatoid arthritis
     Route: 065
  39. ACETAMINOPHEN [Suspect]
     Active Substance: ACETAMINOPHEN
     Route: 065
  40. ACETAMINOPHEN [Suspect]
     Active Substance: ACETAMINOPHEN
     Route: 065
  41. ACETAMINOPHEN AND CODEINE [Suspect]
     Active Substance: ACETAMINOPHEN\CODEINE PHOSPHATE
     Indication: Rheumatoid arthritis
     Route: 065
  42. ACETAMINOPHEN AND CODEINE [Suspect]
     Active Substance: ACETAMINOPHEN\CODEINE PHOSPHATE
     Indication: Rheumatoid arthritis
     Route: 065
  43. ACTEMRA [Suspect]
     Active Substance: TOCILIZUMAB
     Indication: Rheumatoid arthritis
     Route: 058
  44. ACTEMRA [Suspect]
     Active Substance: TOCILIZUMAB
     Route: 040
  45. ACTEMRA [Suspect]
     Active Substance: TOCILIZUMAB
     Route: 040
  46. ACTEMRA [Suspect]
     Active Substance: TOCILIZUMAB
     Route: 040
  47. ACTEMRA [Suspect]
     Active Substance: TOCILIZUMAB
     Route: 040
  48. ACTEMRA [Suspect]
     Active Substance: TOCILIZUMAB
     Route: 058
  49. ACTEMRA [Suspect]
     Active Substance: TOCILIZUMAB
     Route: 042
  50. ACTEMRA [Suspect]
     Active Substance: TOCILIZUMAB
     Route: 061
  51. ACTEMRA [Suspect]
     Active Substance: TOCILIZUMAB
     Route: 040
  52. ACTEMRA [Suspect]
     Active Substance: TOCILIZUMAB
     Route: 040
  53. ACTEMRA [Suspect]
     Active Substance: TOCILIZUMAB
     Route: 042
  54. ACTEMRA [Suspect]
     Active Substance: TOCILIZUMAB
     Route: 042
  55. ACTEMRA [Suspect]
     Active Substance: TOCILIZUMAB
     Route: 040
  56. ACTEMRA [Suspect]
     Active Substance: TOCILIZUMAB
     Route: 040
  57. ACTEMRA [Suspect]
     Active Substance: TOCILIZUMAB
     Route: 042
  58. ACTEMRA [Suspect]
     Active Substance: TOCILIZUMAB
     Route: 042
  59. ACTEMRA [Suspect]
     Active Substance: TOCILIZUMAB
     Route: 042
  60. ACTEMRA [Suspect]
     Active Substance: TOCILIZUMAB
     Route: 065
  61. ACTEMRA [Suspect]
     Active Substance: TOCILIZUMAB
     Route: 058
  62. ACTEMRA [Suspect]
     Active Substance: TOCILIZUMAB
     Route: 065
  63. ACTEMRA [Suspect]
     Active Substance: TOCILIZUMAB
     Route: 058
  64. ACTEMRA [Suspect]
     Active Substance: TOCILIZUMAB
     Route: 050
  65. ACTEMRA [Suspect]
     Active Substance: TOCILIZUMAB
     Route: 058
  66. ACTEMRA [Suspect]
     Active Substance: TOCILIZUMAB
     Route: 016
  67. ACTEMRA [Suspect]
     Active Substance: TOCILIZUMAB
     Route: 040
  68. ACTEMRA [Suspect]
     Active Substance: TOCILIZUMAB
     Route: 058
  69. ACTEMRA [Suspect]
     Active Substance: TOCILIZUMAB
     Route: 065
  70. ACTEMRA [Suspect]
     Active Substance: TOCILIZUMAB
     Route: 065
  71. ACTEMRA [Suspect]
     Active Substance: TOCILIZUMAB
     Route: 065
  72. ACTEMRA [Suspect]
     Active Substance: TOCILIZUMAB
     Route: 016
  73. ACTEMRA [Suspect]
     Active Substance: TOCILIZUMAB
     Route: 065
  74. ACTEMRA [Suspect]
     Active Substance: TOCILIZUMAB
     Route: 058
  75. ACTEMRA [Suspect]
     Active Substance: TOCILIZUMAB
     Route: 058
  76. ACTEMRA [Suspect]
     Active Substance: TOCILIZUMAB
     Route: 041
  77. ACTEMRA [Suspect]
     Active Substance: TOCILIZUMAB
     Indication: Rheumatoid arthritis
     Route: 042
  78. AIMOVIG [Suspect]
     Active Substance: ERENUMAB-AOOE
     Indication: Migraine
     Route: 065
  79. AIMOVIG [Suspect]
     Active Substance: ERENUMAB-AOOE
     Indication: Migraine
     Route: 065
  80. AIMOVIG [Suspect]
     Active Substance: ERENUMAB-AOOE
     Route: 065
  81. AIMOVIG [Suspect]
     Active Substance: ERENUMAB-AOOE
     Route: 065
  82. ALENDRONATE SODIUM [Suspect]
     Active Substance: ALENDRONATE SODIUM
     Indication: Rheumatoid arthritis
     Route: 048
  83. ALENDRONATE SODIUM [Suspect]
     Active Substance: ALENDRONATE SODIUM
     Route: 048
  84. ALENDRONATE SODIUM [Suspect]
     Active Substance: ALENDRONATE SODIUM
     Route: 016
  85. ALENDRONATE SODIUM [Suspect]
     Active Substance: ALENDRONATE SODIUM
     Route: 065
  86. ALENDRONATE SODIUM [Suspect]
     Active Substance: ALENDRONATE SODIUM
     Route: 065
  87. ALENDRONATE SODIUM [Suspect]
     Active Substance: ALENDRONATE SODIUM
     Indication: Rheumatoid arthritis
     Route: 065
  88. PREDNISONE [Suspect]
     Active Substance: PREDNISONE
     Indication: Rheumatoid arthritis
     Route: 048
  89. PREDNISONE [Suspect]
     Active Substance: PREDNISONE
     Route: 065
  90. PREDNISONE [Suspect]
     Active Substance: PREDNISONE
     Route: 048
  91. PREDNISONE [Suspect]
     Active Substance: PREDNISONE
     Route: 048
  92. PREDNISONE [Suspect]
     Active Substance: PREDNISONE
     Route: 048
  93. PREDNISONE [Suspect]
     Active Substance: PREDNISONE
     Route: 048
  94. PREDNISONE [Suspect]
     Active Substance: PREDNISONE
     Route: 048
  95. PREDNISONE [Suspect]
     Active Substance: PREDNISONE
     Route: 048
  96. PREDNISONE [Suspect]
     Active Substance: PREDNISONE
     Route: 065
  97. ARAVA [Suspect]
     Active Substance: LEFLUNOMIDE
     Indication: Rheumatoid arthritis
     Route: 048
  98. ARAVA [Suspect]
     Active Substance: LEFLUNOMIDE
     Route: 065
  99. ARAVA [Suspect]
     Active Substance: LEFLUNOMIDE
     Route: 048
  100. ARAVA [Suspect]
     Active Substance: LEFLUNOMIDE
     Route: 048
  101. ATOMOXETINE HYDROCHLORIDE [Suspect]
     Active Substance: ATOMOXETINE HYDROCHLORIDE
     Indication: Migraine
     Route: 065
  102. ATOMOXETINE HYDROCHLORIDE [Suspect]
     Active Substance: ATOMOXETINE HYDROCHLORIDE
     Route: 065
  103. ATOMOXETINE HYDROCHLORIDE [Suspect]
     Active Substance: ATOMOXETINE HYDROCHLORIDE
     Route: 065
  104. ATOMOXETINE HYDROCHLORIDE [Suspect]
     Active Substance: ATOMOXETINE HYDROCHLORIDE
     Route: 065
  105. ATOMOXETINE HYDROCHLORIDE [Suspect]
     Active Substance: ATOMOXETINE HYDROCHLORIDE
     Route: 065
  106. ATOMOXETINE HYDROCHLORIDE [Suspect]
     Active Substance: ATOMOXETINE HYDROCHLORIDE
     Indication: Migraine
     Route: 065
  107. AZATHIOPRINE SODIUM [Suspect]
     Active Substance: AZATHIOPRINE SODIUM
     Indication: Rheumatoid arthritis
     Route: 065
  108. AZATHIOPRINE SODIUM [Suspect]
     Active Substance: AZATHIOPRINE SODIUM
     Route: 065
  109. AZATHIOPRINE SODIUM [Suspect]
     Active Substance: AZATHIOPRINE SODIUM
     Route: 065
  110. AZATHIOPRINE SODIUM [Suspect]
     Active Substance: AZATHIOPRINE SODIUM
     Route: 065
  111. BERINERT [Suspect]
     Active Substance: HUMAN C1-ESTERASE INHIBITOR
     Indication: Rheumatoid arthritis
     Route: 065
  112. BERINERT [Suspect]
     Active Substance: HUMAN C1-ESTERASE INHIBITOR
     Route: 065
  113. BOTULINUM TOXIN TYPE A [Suspect]
     Active Substance: BOTULINUM TOXIN TYPE A
     Indication: Product used for unknown indication
     Route: 065
  114. BUTRANS [Suspect]
     Active Substance: BUPRENORPHINE
     Indication: Product used for unknown indication
     Route: 065
  115. BUTRANS [Suspect]
     Active Substance: BUPRENORPHINE
     Route: 065
  116. BUTRANS [Suspect]
     Active Substance: BUPRENORPHINE
     Route: 065
  117. CALCIUM [Suspect]
     Active Substance: CALCIUM
     Indication: Product used for unknown indication
     Route: 065
  118. CALCIUM ASCORBATE [Suspect]
     Active Substance: CALCIUM ASCORBATE
     Indication: Product used for unknown indication
     Route: 065
  119. CALCIUM ASCORBATE [Suspect]
     Active Substance: CALCIUM ASCORBATE
     Indication: Product used for unknown indication
     Route: 065
  120. CALCIUM ASCORBATE [Suspect]
     Active Substance: CALCIUM ASCORBATE
     Route: 065
  121. CALCIUM CITRATE [Suspect]
     Active Substance: CALCIUM CITRATE
     Indication: Product used for unknown indication
     Route: 065
  122. CALCIUM GLUBIONATE [Suspect]
     Active Substance: CALCIUM GLUBIONATE
     Indication: Product used for unknown indication
     Route: 065
  123. CALCIUM GLUBIONATE [Suspect]
     Active Substance: CALCIUM GLUBIONATE
     Route: 065
  124. CALCIUM GLUBIONATE [Suspect]
     Active Substance: CALCIUM GLUBIONATE
     Indication: Product used for unknown indication
     Route: 016
  125. CANDESARTAN [Suspect]
     Active Substance: CANDESARTAN
     Indication: Rheumatoid arthritis
     Route: 065
  126. CANDESARTAN [Suspect]
     Active Substance: CANDESARTAN
     Indication: Migraine
     Route: 048
  127. CANDESARTAN [Suspect]
     Active Substance: CANDESARTAN
     Indication: Rheumatoid arthritis
     Route: 065
  128. CANDESARTAN [Suspect]
     Active Substance: CANDESARTAN
     Indication: Migraine
  129. CELECOXIB [Suspect]
     Active Substance: CELECOXIB
     Indication: Product used for unknown indication
     Route: 048
  130. CELECOXIB [Suspect]
     Active Substance: CELECOXIB
     Indication: Product used for unknown indication
     Route: 065
  131. CELECOXIB [Suspect]
     Active Substance: CELECOXIB
     Route: 048
  132. CELECOXIB [Suspect]
     Active Substance: CELECOXIB
     Route: 065
  133. CELECOXIB [Suspect]
     Active Substance: CELECOXIB
     Route: 065
  134. CELECOXIB [Suspect]
     Active Substance: CELECOXIB
     Route: 065
  135. CELECOXIB [Suspect]
     Active Substance: CELECOXIB
     Route: 065
  136. CELECOXIB [Suspect]
     Active Substance: CELECOXIB
     Route: 065
  137. CETIRIZINE [Suspect]
     Active Substance: CETIRIZINE HYDROCHLORIDE
     Indication: Rheumatoid arthritis
     Route: 065
  138. CETIRIZINE [Suspect]
     Active Substance: CETIRIZINE HYDROCHLORIDE
     Route: 065
  139. CETIRIZINE [Suspect]
     Active Substance: CETIRIZINE HYDROCHLORIDE
     Route: 065
  140. CETIRIZINE [Suspect]
     Active Substance: CETIRIZINE HYDROCHLORIDE
     Route: 048
  141. CETIRIZINE [Suspect]
     Active Substance: CETIRIZINE HYDROCHLORIDE
     Route: 048
  142. CETIRIZINE [Suspect]
     Active Substance: CETIRIZINE HYDROCHLORIDE
     Route: 065
  143. CETIRIZINE [Suspect]
     Active Substance: CETIRIZINE HYDROCHLORIDE
     Route: 065
  144. CETIRIZINE [Suspect]
     Active Substance: CETIRIZINE HYDROCHLORIDE
     Route: 065
  145. CETIRIZINE [Suspect]
     Active Substance: CETIRIZINE HYDROCHLORIDE
     Route: 065
  146. CETIRIZINE [Suspect]
     Active Substance: CETIRIZINE HYDROCHLORIDE
     Indication: Rheumatoid arthritis
     Route: 065
  147. CHLORHEXIDINE GLUCONATE [Suspect]
     Active Substance: CHLORHEXIDINE GLUCONATE
     Indication: Rheumatoid arthritis
     Route: 065
  148. CHLORHEXIDINE GLUCONATE [Suspect]
     Active Substance: CHLORHEXIDINE GLUCONATE
     Route: 065
  149. CHLORHEXIDINE GLUCONATE [Suspect]
     Active Substance: CHLORHEXIDINE GLUCONATE
     Route: 061
  150. CHOLECALCIFEROL [Suspect]
     Active Substance: CHOLECALCIFEROL
     Indication: Product used for unknown indication
     Route: 065
  151. CIMZIA [Suspect]
     Active Substance: CERTOLIZUMAB PEGOL
     Indication: Rheumatoid arthritis
     Route: 058
  152. CIMZIA [Suspect]
     Active Substance: CERTOLIZUMAB PEGOL
     Dosage: 200 MILLIGRAM, 1 EVERY 2 WEEKS
     Route: 058
  153. CIMZIA [Suspect]
     Active Substance: CERTOLIZUMAB PEGOL
     Route: 058
  154. CIMZIA [Suspect]
     Active Substance: CERTOLIZUMAB PEGOL
     Route: 058
  155. CIMZIA [Suspect]
     Active Substance: CERTOLIZUMAB PEGOL
     Route: 058
  156. CORTISONE ACETATE [Suspect]
     Active Substance: CORTISONE ACETATE
     Indication: Rheumatoid arthritis
     Route: 065
  157. CORTISONE ACETATE [Suspect]
     Active Substance: CORTISONE ACETATE
     Route: 061
  158. CORTISONE ACETATE [Suspect]
     Active Substance: CORTISONE ACETATE
     Route: 065
  159. CORTISONE ACETATE [Suspect]
     Active Substance: CORTISONE ACETATE
     Route: 065
  160. CORTISONE ACETATE [Suspect]
     Active Substance: CORTISONE ACETATE
     Route: 065
  161. COSENTYX [Suspect]
     Active Substance: SECUKINUMAB
     Indication: Rheumatoid arthritis
     Route: 065
  162. COSENTYX [Suspect]
     Active Substance: SECUKINUMAB
     Indication: Psoriatic arthropathy
     Route: 065
  163. COSENTYX [Suspect]
     Active Substance: SECUKINUMAB
     Indication: Rheumatoid arthritis
     Route: 065
  164. COSENTYX [Suspect]
     Active Substance: SECUKINUMAB
     Indication: Psoriatic arthropathy
  165. DESOXIMETASONE [Suspect]
     Active Substance: DESOXIMETASONE
     Indication: Rheumatoid arthritis
     Route: 065
  166. DESOXIMETASONE [Suspect]
     Active Substance: DESOXIMETASONE
     Indication: Rheumatoid arthritis
     Route: 058
  167. DESOXIMETASONE [Suspect]
     Active Substance: DESOXIMETASONE
     Route: 058
  168. DESOXIMETASONE [Suspect]
     Active Substance: DESOXIMETASONE
     Route: 065
  169. DESOXIMETASONE [Suspect]
     Active Substance: DESOXIMETASONE
     Route: 058
  170. DICLOFENAC SODIUM [Suspect]
     Active Substance: DICLOFENAC SODIUM
     Indication: Rheumatoid arthritis
     Route: 065
  171. DICLOFENAC SODIUM [Suspect]
     Active Substance: DICLOFENAC SODIUM
     Route: 065
  172. DICLOFENAC SODIUM [Suspect]
     Active Substance: DICLOFENAC SODIUM
     Indication: Product used for unknown indication
     Route: 065
  173. DICLOFENAC SODIUM [Suspect]
     Active Substance: DICLOFENAC SODIUM
     Route: 065
  174. DICLOFENAC SODIUM [Suspect]
     Active Substance: DICLOFENAC SODIUM
     Route: 058
  175. DICLOFENAC SODIUM [Suspect]
     Active Substance: DICLOFENAC SODIUM
     Route: 058
  176. DICLOFENAC SODIUM [Suspect]
     Active Substance: DICLOFENAC SODIUM
     Route: 065
  177. DOMPERIDONE MALEATE [Suspect]
     Active Substance: DOMPERIDONE MALEATE
     Indication: Product used for unknown indication
     Route: 065
  178. DOMPERIDONE MALEATE [Suspect]
     Active Substance: DOMPERIDONE MALEATE
     Route: 065
  179. ENBREL [Suspect]
     Active Substance: ETANERCEPT
     Indication: Rheumatoid arthritis
     Dosage: 50 MILLIGRAM, 1 EVERY 1 WEEKS
     Route: 058
  180. ENBREL [Suspect]
     Active Substance: ETANERCEPT
     Route: 058
  181. ENBREL [Suspect]
     Active Substance: ETANERCEPT
     Route: 058
  182. ENBREL [Suspect]
     Active Substance: ETANERCEPT
     Route: 065
  183. ENBREL [Suspect]
     Active Substance: ETANERCEPT
     Route: 058
  184. ENBREL [Suspect]
     Active Substance: ETANERCEPT
     Route: 065
  185. ENBREL [Suspect]
     Active Substance: ETANERCEPT
     Route: 058
  186. ENBREL [Suspect]
     Active Substance: ETANERCEPT
     Route: 058
  187. ENBREL [Suspect]
     Active Substance: ETANERCEPT
     Dosage: 50 MILLIGRAM, 1 EVERY 1 WEEKS
     Route: 058
  188. ENBREL [Suspect]
     Active Substance: ETANERCEPT
     Route: 058
  189. ENBREL [Suspect]
     Active Substance: ETANERCEPT
     Route: 065
  190. ENBREL [Suspect]
     Active Substance: ETANERCEPT
     Dosage: 10 MILLIGRAM, 1 EVERY 1 WEEKS
     Route: 058
  191. ERELZI [Suspect]
     Active Substance: ETANERCEPT-SZZS
     Indication: Rheumatoid arthritis
     Route: 048
  192. ERELZI [Suspect]
     Active Substance: ETANERCEPT-SZZS
     Route: 065
  193. ERELZI [Suspect]
     Active Substance: ETANERCEPT-SZZS
     Route: 065
  194. ERELZI [Suspect]
     Active Substance: ETANERCEPT-SZZS
     Route: 058
  195. ERELZI [Suspect]
     Active Substance: ETANERCEPT-SZZS
     Route: 058
  196. ERELZI [Suspect]
     Active Substance: ETANERCEPT-SZZS
     Route: 058
  197. ERGOCALCIFEROL [Suspect]
     Active Substance: ERGOCALCIFEROL
     Indication: Product used for unknown indication
     Route: 065
  198. ERGOCALCIFEROL [Suspect]
     Active Substance: ERGOCALCIFEROL
     Indication: Product used for unknown indication
     Route: 065
  199. FLUMETHASONE [Suspect]
     Active Substance: FLUMETHASONE
     Indication: Product used for unknown indication
     Route: 065
  200. FLUMETHASONE PIVALATE [Suspect]
     Active Substance: FLUMETHASONE PIVALATE
     Indication: Product used for unknown indication
     Route: 003
  201. FOLIC ACID [Suspect]
     Active Substance: FOLIC ACID
     Indication: Rheumatoid arthritis
     Route: 058
  202. FOLIC ACID [Suspect]
     Active Substance: FOLIC ACID
     Route: 065
  203. FOLIC ACID [Suspect]
     Active Substance: FOLIC ACID
     Route: 058
  204. FOLIC ACID [Suspect]
     Active Substance: FOLIC ACID
     Route: 048
  205. FOLIC ACID [Suspect]
     Active Substance: FOLIC ACID
     Route: 065
  206. FOLIC ACID [Suspect]
     Active Substance: FOLIC ACID
     Route: 048
  207. FOLIC ACID [Suspect]
     Active Substance: FOLIC ACID
     Route: 048
  208. FOLIC ACID [Suspect]
     Active Substance: FOLIC ACID
     Route: 048
  209. FOLIC ACID [Suspect]
     Active Substance: FOLIC ACID
     Route: 058
  210. FOLIC ACID [Suspect]
     Active Substance: FOLIC ACID
     Route: 065
  211. FOLIC ACID [Suspect]
     Active Substance: FOLIC ACID
     Route: 048
  212. FOLIC ACID [Suspect]
     Active Substance: FOLIC ACID
     Route: 065
  213. FOLIC ACID [Suspect]
     Active Substance: FOLIC ACID
     Route: 048
  214. FOLIC ACID [Suspect]
     Active Substance: FOLIC ACID
     Route: 065
  215. FOLIC ACID [Suspect]
     Active Substance: FOLIC ACID
     Route: 048
  216. FOLIC ACID [Suspect]
     Active Substance: FOLIC ACID
     Route: 065
  217. FOLIC ACID [Suspect]
     Active Substance: FOLIC ACID
     Route: 065
  218. FOLIC ACID [Suspect]
     Active Substance: FOLIC ACID
     Route: 065
  219. FOLIC ACID [Suspect]
     Active Substance: FOLIC ACID
     Route: 065
  220. FOLIC ACID [Suspect]
     Active Substance: FOLIC ACID
     Route: 065
  221. FOLIC ACID [Suspect]
     Active Substance: FOLIC ACID
     Route: 065
  222. FOLIC ACID [Suspect]
     Active Substance: FOLIC ACID
     Indication: Rheumatoid arthritis
     Route: 065
  223. FOSAMAX [Suspect]
     Active Substance: ALENDRONATE SODIUM
     Indication: Rheumatoid arthritis
     Route: 048
  224. FOSAMAX [Suspect]
     Active Substance: ALENDRONATE SODIUM
     Indication: Rheumatoid arthritis
     Route: 058
  225. FOSAMAX [Suspect]
     Active Substance: ALENDRONATE SODIUM
     Route: 016
  226. GOLD [Suspect]
     Active Substance: GOLD
     Indication: Product used for unknown indication
     Route: 065
  227. HAIR KERATIN AMINO ACIDS GOLD COMPLEX [Suspect]
     Active Substance: HAIR KERATIN AMINO ACIDS GOLD COMPLEX
     Indication: Product used for unknown indication
     Route: 065
  228. GOLD SODIUM THIOMALATE [Suspect]
     Active Substance: GOLD SODIUM THIOMALATE
     Indication: Product used for unknown indication
     Route: 030
  229. GOLD SODIUM THIOMALATE [Suspect]
     Active Substance: GOLD SODIUM THIOMALATE
     Route: 065
  230. GOLD SODIUM THIOMALATE [Suspect]
     Active Substance: GOLD SODIUM THIOMALATE
     Route: 030
  231. HUMIRA [Suspect]
     Active Substance: ADALIMUMAB
     Indication: Rheumatoid arthritis
     Route: 057
  232. HUMIRA [Suspect]
     Active Substance: ADALIMUMAB
     Route: 058
  233. HUMIRA [Suspect]
     Active Substance: ADALIMUMAB
     Route: 058
  234. HUMIRA [Suspect]
     Active Substance: ADALIMUMAB
     Route: 065
  235. HUMIRA [Suspect]
     Active Substance: ADALIMUMAB
     Route: 058
  236. HUMIRA [Suspect]
     Active Substance: ADALIMUMAB
     Route: 058
  237. HUMIRA [Suspect]
     Active Substance: ADALIMUMAB
     Route: 058
  238. HUMIRA [Suspect]
     Active Substance: ADALIMUMAB
     Route: 065
  239. HYDROCORTISONE [Suspect]
     Active Substance: HYDROCORTISONE
     Indication: Product used for unknown indication
     Route: 065
  240. HYDROCORTISONE [Suspect]
     Active Substance: HYDROCORTISONE
     Indication: Product used for unknown indication
     Route: 065
  241. HYDROCORTISONE PROBUTATE [Suspect]
     Active Substance: HYDROCORTISONE PROBUTATE
     Indication: Rheumatoid arthritis
     Route: 065
  242. HYDROCORTISONE PROBUTATE [Suspect]
     Active Substance: HYDROCORTISONE PROBUTATE
     Route: 065
  243. INFLIXIMAB [Suspect]
     Active Substance: INFLIXIMAB
     Indication: Rheumatoid arthritis
     Route: 042
  244. INFLIXIMAB [Suspect]
     Active Substance: INFLIXIMAB
     Route: 065
  245. INFLIXIMAB [Suspect]
     Active Substance: INFLIXIMAB
     Route: 042
  246. INFLIXIMAB [Suspect]
     Active Substance: INFLIXIMAB
     Route: 042
  247. INFLIXIMAB [Suspect]
     Active Substance: INFLIXIMAB
     Route: 042
  248. INFLIXIMAB [Suspect]
     Active Substance: INFLIXIMAB
     Route: 065
  249. INFLIXIMAB [Suspect]
     Active Substance: INFLIXIMAB
     Route: 042
  250. INFLIXIMAB [Suspect]
     Active Substance: INFLIXIMAB
     Route: 065
  251. INFLIXIMAB [Suspect]
     Active Substance: INFLIXIMAB
     Route: 065
  252. INFLIXIMAB [Suspect]
     Active Substance: INFLIXIMAB
     Indication: Rheumatoid arthritis
     Route: 042
  253. ISOPROPYL ALCOHOL [Suspect]
     Active Substance: ISOPROPYL ALCOHOL
     Indication: Rheumatoid arthritis
     Route: 061
  254. ISOPROPYL ALCOHOL [Suspect]
     Active Substance: ISOPROPYL ALCOHOL
     Indication: Rheumatoid arthritis
     Route: 061
  255. KEVZARA [Suspect]
     Active Substance: SARILUMAB
     Indication: Product used for unknown indication
     Route: 065
  256. LAMICTAL [Suspect]
     Active Substance: LAMOTRIGINE
     Indication: Product used for unknown indication
     Route: 048
  257. LAMICTAL [Suspect]
     Active Substance: LAMOTRIGINE
     Route: 048
  258. LAMICTAL [Suspect]
     Active Substance: LAMOTRIGINE
     Route: 048
  259. LAMICTAL [Suspect]
     Active Substance: LAMOTRIGINE
     Route: 048
  260. LAMICTAL [Suspect]
     Active Substance: LAMOTRIGINE
     Route: 048
  261. LAMICTAL [Suspect]
     Active Substance: LAMOTRIGINE
     Route: 048
  262. LAMICTAL [Suspect]
     Active Substance: LAMOTRIGINE
     Route: 048
  263. LAMICTAL [Suspect]
     Active Substance: LAMOTRIGINE
     Route: 048
  264. LAMICTAL [Suspect]
     Active Substance: LAMOTRIGINE
     Route: 048
  265. LEFLUNOMIDE [Suspect]
     Active Substance: LEFLUNOMIDE
     Indication: Rheumatoid arthritis
     Route: 065
  266. LEFLUNOMIDE [Suspect]
     Active Substance: LEFLUNOMIDE
     Route: 048
  267. LEFLUNOMIDE [Suspect]
     Active Substance: LEFLUNOMIDE
     Route: 065
  268. LEFLUNOMIDE [Suspect]
     Active Substance: LEFLUNOMIDE
     Route: 065
  269. LEFLUNOMIDE [Suspect]
     Active Substance: LEFLUNOMIDE
     Indication: Rheumatoid arthritis
     Route: 048
  270. MAGNESIUM CITRATE [Suspect]
     Active Substance: MAGNESIUM CITRATE
     Indication: Product used for unknown indication
     Route: 065
  271. METFORMIN HYDROCHLORIDE [Suspect]
     Active Substance: METFORMIN HYDROCHLORIDE
     Indication: Product used for unknown indication
     Route: 042
  272. METFORMIN HYDROCHLORIDE [Suspect]
     Active Substance: METFORMIN HYDROCHLORIDE
     Route: 065
  273. METFORMIN HYDROCHLORIDE [Suspect]
     Active Substance: METFORMIN HYDROCHLORIDE
     Route: 065
  274. METHOTREXATE [Suspect]
     Active Substance: METHOTREXATE
     Indication: Rheumatoid arthritis
     Route: 065
  275. METHOTREXATE [Suspect]
     Active Substance: METHOTREXATE
     Route: 016
  276. METHOTREXATE [Suspect]
     Active Substance: METHOTREXATE
     Dosage: 25 MILLIGRAM, 1 EVERY 1 WEEKS
     Route: 065
  277. METHOTREXATE [Suspect]
     Active Substance: METHOTREXATE
     Dosage: 20 MILLIGRAM, 1 EVERY 1 WEEKS
     Route: 048
  278. METHOTREXATE [Suspect]
     Active Substance: METHOTREXATE
     Dosage: 20 MILLIGRAM, 1 EVERY 1 WEEKS
     Route: 048
  279. METHOTREXATE [Suspect]
     Active Substance: METHOTREXATE
     Dosage: 20 MILLIGRAM, 1 EVERY 1 WEEKS
     Route: 058
  280. METHOTREXATE [Suspect]
     Active Substance: METHOTREXATE
     Route: 058
  281. METHOTREXATE [Suspect]
     Active Substance: METHOTREXATE
     Route: 065
  282. METHOTREXATE [Suspect]
     Active Substance: METHOTREXATE
     Route: 048
  283. METHOTREXATE [Suspect]
     Active Substance: METHOTREXATE
     Route: 048
  284. METHOTREXATE [Suspect]
     Active Substance: METHOTREXATE
     Route: 048
  285. METHOTREXATE [Suspect]
     Active Substance: METHOTREXATE
     Route: 013
  286. METHOTREXATE [Suspect]
     Active Substance: METHOTREXATE
     Route: 065
  287. METHOTREXATE [Suspect]
     Active Substance: METHOTREXATE
     Route: 065
  288. METHOTREXATE [Suspect]
     Active Substance: METHOTREXATE
     Route: 048
  289. METHOTREXATE [Suspect]
     Active Substance: METHOTREXATE
     Route: 065
  290. METHOTREXATE [Suspect]
     Active Substance: METHOTREXATE
     Route: 065
  291. METHOTREXATE [Suspect]
     Active Substance: METHOTREXATE
     Route: 065
  292. METHOTREXATE [Suspect]
     Active Substance: METHOTREXATE
     Route: 048
  293. METHOTREXATE [Suspect]
     Active Substance: METHOTREXATE
     Dosage: 25 MILLIGRAM, 1 EVERY 1 WEEKS
     Route: 013
  294. METHOTREXATE [Suspect]
     Active Substance: METHOTREXATE
     Route: 048
  295. METHOTREXATE [Suspect]
     Active Substance: METHOTREXATE
     Dosage: 25 MILLIGRAM, 1 EVERY 1 WEEKS
     Route: 058
  296. METHOTREXATE [Suspect]
     Active Substance: METHOTREXATE
     Dosage: 15 MILLIGRAM, 1 EVERY 1 WEEKS
     Route: 058
  297. METHOTREXATE [Suspect]
     Active Substance: METHOTREXATE
     Route: 048
  298. METHOTREXATE [Suspect]
     Active Substance: METHOTREXATE
     Indication: Rheumatoid arthritis
     Dosage: 25 MILLIGRAM, 1 EVERY 1 WEEKS
     Route: 048
  299. METHYLPREDNISOLONE [Suspect]
     Active Substance: METHYLPREDNISOLONE
     Indication: Product used for unknown indication
     Route: 065
  300. METHYLPREDNISOLONE [Suspect]
     Active Substance: METHYLPREDNISOLONE
     Route: 065
  301. METHYLPREDNISOLONE SODIUM SUCCINATE [Suspect]
     Active Substance: METHYLPREDNISOLONE SODIUM SUCCINATE
     Indication: Product used for unknown indication
     Route: 065
  302. MINOCYCLINE HYDROCHLORIDE [Suspect]
     Active Substance: MINOCYCLINE HYDROCHLORIDE
     Indication: Rheumatoid arthritis
     Route: 065
  303. MINOCYCLINE HYDROCHLORIDE [Suspect]
     Active Substance: MINOCYCLINE HYDROCHLORIDE
     Route: 065
  304. MINOCYCLINE HYDROCHLORIDE [Suspect]
     Active Substance: MINOCYCLINE HYDROCHLORIDE
     Route: 065
  305. MINOCYCLINE HYDROCHLORIDE [Suspect]
     Active Substance: MINOCYCLINE HYDROCHLORIDE
     Route: 065
  306. MYOCHRYSINE [Suspect]
     Active Substance: GOLD SODIUM THIOMALATE
     Indication: Rheumatoid arthritis
     Route: 030
  307. MYOCHRYSINE [Suspect]
     Active Substance: GOLD SODIUM THIOMALATE
     Indication: Rheumatoid arthritis
     Route: 030
  308. MYRBETRIQ [Suspect]
     Active Substance: MIRABEGRON
     Indication: Product used for unknown indication
     Route: 065
  309. MYRBETRIQ [Suspect]
     Active Substance: MIRABEGRON
     Route: 065
  310. MYRBETRIQ [Suspect]
     Active Substance: MIRABEGRON
     Route: 065
  311. MYRBETRIQ [Suspect]
     Active Substance: MIRABEGRON
     Indication: Product used for unknown indication
     Route: 065
  312. MYRBETRIQ [Suspect]
     Active Substance: MIRABEGRON
     Indication: Product used for unknown indication
     Route: 065
  313. NAPROXEN [Suspect]
     Active Substance: NAPROXEN
     Indication: Product used for unknown indication
     Route: 065
  314. NAPROXEN [Suspect]
     Active Substance: NAPROXEN
     Indication: Product used for unknown indication
     Route: 065
  315. NAPROXEN [Suspect]
     Active Substance: NAPROXEN
     Indication: Product used for unknown indication
     Route: 065
  316. NAPROXEN SODIUM [Suspect]
     Active Substance: NAPROXEN SODIUM
     Indication: Rheumatoid arthritis
     Route: 065
  317. NAPROXEN SODIUM [Suspect]
     Active Substance: NAPROXEN SODIUM
     Route: 065
  318. NAPROXEN SODIUM [Suspect]
     Active Substance: NAPROXEN SODIUM
     Indication: Rheumatoid arthritis
     Route: 065
  319. NICOTINAMIDE [Suspect]
     Active Substance: NIACINAMIDE
     Indication: Product used for unknown indication
     Route: 065
  320. NICOTINAMIDE [Suspect]
     Active Substance: NIACINAMIDE
     Indication: Product used for unknown indication
     Route: 065
  321. NUCALA [Suspect]
     Active Substance: MEPOLIZUMAB
     Indication: Product used for unknown indication
     Route: 065
  322. NUCALA [Suspect]
     Active Substance: MEPOLIZUMAB
     Route: 065
  323. ORENCIA [Suspect]
     Active Substance: ABATACEPT
     Indication: Rheumatoid arthritis
     Route: 065
  324. ORENCIA [Suspect]
     Active Substance: ABATACEPT
     Route: 065
  325. ORENCIA [Suspect]
     Active Substance: ABATACEPT
     Route: 065
  326. ORENCIA [Suspect]
     Active Substance: ABATACEPT
     Route: 065
  327. ORENCIA [Suspect]
     Active Substance: ABATACEPT
     Route: 065
  328. ORENCIA [Suspect]
     Active Substance: ABATACEPT
     Route: 065
  329. ORENCIA [Suspect]
     Active Substance: ABATACEPT
     Route: 065
  330. ORENCIA [Suspect]
     Active Substance: ABATACEPT
     Route: 065
  331. ORENCIA [Suspect]
     Active Substance: ABATACEPT
     Route: 065
  332. ORENCIA [Suspect]
     Active Substance: ABATACEPT
     Route: 065
  333. ORENCIA [Suspect]
     Active Substance: ABATACEPT
     Route: 065
  334. ORENCIA [Suspect]
     Active Substance: ABATACEPT
     Route: 058
  335. ORENCIA [Suspect]
     Active Substance: ABATACEPT
     Route: 065
  336. ORENCIA [Suspect]
     Active Substance: ABATACEPT
     Route: 065
  337. ORENCIA [Suspect]
     Active Substance: ABATACEPT
     Dosage: 125 MILLIGRAM, 1 EVERY 1 WEEKS
     Route: 058
  338. ORENCIA [Suspect]
     Active Substance: ABATACEPT
     Route: 065
  339. ORENCIA [Suspect]
     Active Substance: ABATACEPT
     Route: 065
  340. ORENCIA [Suspect]
     Active Substance: ABATACEPT
     Route: 065
  341. ORENCIA [Suspect]
     Active Substance: ABATACEPT
     Route: 065
  342. ORENCIA [Suspect]
     Active Substance: ABATACEPT
     Route: 065
  343. ORENCIA [Suspect]
     Active Substance: ABATACEPT
     Route: 065
  344. ORENCIA [Suspect]
     Active Substance: ABATACEPT
     Route: 065
  345. ORENCIA [Suspect]
     Active Substance: ABATACEPT
     Route: 065
  346. ORENCIA [Suspect]
     Active Substance: ABATACEPT
     Route: 065
  347. ORENCIA [Suspect]
     Active Substance: ABATACEPT
     Route: 065
  348. ORENCIA [Suspect]
     Active Substance: ABATACEPT
     Route: 065
  349. ORENCIA [Suspect]
     Active Substance: ABATACEPT
     Route: 058
  350. ORENCIA [Suspect]
     Active Substance: ABATACEPT
     Route: 065
  351. ORENCIA [Suspect]
     Active Substance: ABATACEPT
     Route: 065
  352. ORENCIA [Suspect]
     Active Substance: ABATACEPT
     Dosage: 125 MILLIGRAM, 1 EVERY 1 WEEKS
     Route: 058
  353. OXYCODONE [Suspect]
     Active Substance: OXYCODONE
     Indication: Product used for unknown indication
     Route: 065
  354. OXYCODONE TEREPHTHALATE [Suspect]
     Active Substance: OXYCODONE TEREPHTHALATE
     Indication: Product used for unknown indication
     Route: 065
  355. PERIOGARD [Suspect]
     Active Substance: CHLORHEXIDINE GLUCONATE
     Indication: Product used for unknown indication
     Route: 065
  356. PHENYLEPHRINE HYDROCHLORIDE [Suspect]
     Active Substance: PHENYLEPHRINE HYDROCHLORIDE
     Indication: Product used for unknown indication
     Route: 065
  357. PHENYLEPHRINE HYDROCHLORIDE [Suspect]
     Active Substance: PHENYLEPHRINE HYDROCHLORIDE
     Route: 065
  358. PHTHALYLSULFATHIAZOLE [Suspect]
     Active Substance: PHTHALYLSULFATHIAZOLE
     Indication: Rheumatoid arthritis
     Route: 058
  359. PHTHALYLSULFATHIAZOLE [Suspect]
     Active Substance: PHTHALYLSULFATHIAZOLE
     Route: 065
  360. PHTHALYLSULFATHIAZOLE [Suspect]
     Active Substance: PHTHALYLSULFATHIAZOLE
     Route: 065
  361. PHTHALYLSULFATHIAZOLE [Suspect]
     Active Substance: PHTHALYLSULFATHIAZOLE
     Route: 048
  362. PHTHALYLSULFATHIAZOLE [Suspect]
     Active Substance: PHTHALYLSULFATHIAZOLE
     Route: 065
  363. PHTHALYLSULFATHIAZOLE [Suspect]
     Active Substance: PHTHALYLSULFATHIAZOLE
     Route: 065
  364. PHTHALYLSULFATHIAZOLE [Suspect]
     Active Substance: PHTHALYLSULFATHIAZOLE
     Route: 048
  365. PHTHALYLSULFATHIAZOLE [Suspect]
     Active Substance: PHTHALYLSULFATHIAZOLE
     Route: 065
  366. PLAQUENIL [Suspect]
     Active Substance: HYDROXYCHLOROQUINE SULFATE
     Indication: Rheumatoid arthritis
     Route: 065
  367. PREDNISONE [Suspect]
     Active Substance: PREDNISONE
     Indication: Rheumatoid arthritis
     Route: 048
  368. PREDNISONE [Suspect]
     Active Substance: PREDNISONE
     Route: 048
  369. PREDNISONE [Suspect]
     Active Substance: PREDNISONE
     Route: 048
  370. PREDNISONE [Suspect]
     Active Substance: PREDNISONE
     Route: 065
  371. PREDNISONE [Suspect]
     Active Substance: PREDNISONE
     Route: 065
  372. PREDNISONE [Suspect]
     Active Substance: PREDNISONE
     Route: 048
  373. PREDNISONE [Suspect]
     Active Substance: PREDNISONE
     Route: 065
  374. PREDNISONE [Suspect]
     Active Substance: PREDNISONE
     Route: 048
  375. PREDNISONE [Suspect]
     Active Substance: PREDNISONE
     Route: 065
  376. PREDNISONE [Suspect]
     Active Substance: PREDNISONE
     Indication: Rheumatoid arthritis
     Route: 065
  377. PSEUDOEPHEDRINE [Suspect]
     Active Substance: PSEUDOEPHEDRINE
     Indication: Product used for unknown indication
     Route: 065
  378. PSEUDOEPHEDRINE HYDROCHLORIDE [Suspect]
     Active Substance: PSEUDOEPHEDRINE HYDROCHLORIDE
     Indication: Rheumatoid arthritis
     Route: 065
  379. PSEUDOEPHEDRINE HYDROCHLORIDE [Suspect]
     Active Substance: PSEUDOEPHEDRINE HYDROCHLORIDE
     Route: 065
  380. PSEUDOEPHEDRINE HYDROCHLORIDE [Suspect]
     Active Substance: PSEUDOEPHEDRINE HYDROCHLORIDE
     Route: 065
  381. PSEUDOEPHEDRINE HYDROCHLORIDE [Suspect]
     Active Substance: PSEUDOEPHEDRINE HYDROCHLORIDE
     Route: 065

REACTIONS (16)
  - Blister [Fatal]
  - Blood cholesterol increased [Fatal]
  - Breast cancer stage III [Fatal]
  - Synovitis [Fatal]
  - Systemic lupus erythematosus [Fatal]
  - Type 2 diabetes mellitus [Fatal]
  - Vomiting [Fatal]
  - Weight increased [Fatal]
  - Wheezing [Fatal]
  - Wound [Fatal]
  - Urticaria [Fatal]
  - Underdose [Unknown]
  - Overdose [Unknown]
  - Intentional product use issue [Unknown]
  - Intentional product use issue [Unknown]
  - Intentional product use issue [Unknown]
